FAERS Safety Report 7481168-X (Version None)
Quarter: 2011Q2

REPORT INFORMATION
  Report Type: 
  Country: None (occurrence: None)
  Receive Date: 20110516
  Receipt Date: 20110505
  Transmission Date: 20111010
  Serious: Yes (Hospitalization)
  Sender: FDA-Public Use
  Company Number: US-JNJFOC-20100407699

PATIENT
  Sex: Male
  Weight: 62.14 kg

DRUGS (11)
  1. ACETAMINOPHEN [Suspect]
  2. TRUVADA [Concomitant]
     Indication: HIV INFECTION
     Route: 048
     Dates: start: 20051021, end: 20100426
  3. IMODIUM [Concomitant]
     Indication: DIARRHOEA
     Route: 048
     Dates: start: 20070501
  4. ADVIL LIQUI-GELS [Concomitant]
     Indication: HEADACHE
     Route: 048
  5. AMBIEN [Concomitant]
     Indication: SLEEP DISORDER
     Route: 048
     Dates: start: 20081016
  6. ZOPICLONE [Concomitant]
     Indication: ANXIETY
     Dates: start: 20100401, end: 20100424
  7. ZOPICLONE [Concomitant]
     Indication: SLEEP DISORDER
     Dates: start: 20100401, end: 20100424
  8. ACETAMINOPHEN [Suspect]
     Indication: SELF INJURIOUS BEHAVIOUR
  9. PEPCID [Concomitant]
     Indication: DYSPEPSIA
     Route: 048
     Dates: start: 20070501
  10. WELLBUTRIN [Concomitant]
     Indication: DEPRESSION
     Route: 065
     Dates: start: 20100206
  11. TMC278 [Suspect]
     Indication: HIV INFECTION
     Route: 048
     Dates: start: 20051021, end: 20100426

REACTIONS (1)
  - INTENTIONAL SELF-INJURY [None]
